FAERS Safety Report 8222503-4 (Version None)
Quarter: 2012Q1

REPORT INFORMATION
  Report Type: 
  Country: None (occurrence: None)
  Receive Date: 20120320
  Receipt Date: 20120319
  Transmission Date: 20120608
  Serious: Yes (Death)
  Sender: FDA-Public Use
  Company Number: PHHY2012NZ023222

PATIENT
  Sex: Female

DRUGS (4)
  1. CLOZAPINE [Suspect]
     Dates: start: 20080101
  2. CLOZAPINE [Suspect]
     Dates: start: 20120101, end: 20120119
  3. CLOZARIL [Suspect]
     Indication: SCHIZOPHRENIA
     Dates: end: 20080101
  4. CLOZAPINE [Suspect]
     Dates: start: 20111201

REACTIONS (1)
  - CEREBROVASCULAR ACCIDENT [None]
